FAERS Safety Report 9728311 (Version 1)
Quarter: 2013Q4

REPORT INFORMATION
  Report Type: Spontaneous
  Country: US (occurrence: US)
  Receive Date: 20131204
  Receipt Date: 20131204
  Transmission Date: 20140711
  Serious: Yes (Other)
  Sender: FDA-Public Use
  Company Number: US-BAYER-2013-146759

PATIENT
  Age: 22 Year
  Sex: Female

DRUGS (1)
  1. MIRENA [Suspect]
     Indication: CONTRACEPTION
     Dosage: 20 MCG/24HR, CONT
     Route: 015
     Dates: start: 201202

REACTIONS (6)
  - Ovarian cyst ruptured [None]
  - Ovarian cyst [None]
  - Abdominal pain lower [None]
  - Muscular weakness [None]
  - Sleep disorder [None]
  - Memory impairment [None]
